FAERS Safety Report 11661003 (Version 1)
Quarter: 2015Q4

REPORT INFORMATION
  Report Type: Other
  Country: BR (occurrence: BR)
  Receive Date: 20151026
  Receipt Date: 20151026
  Transmission Date: 20160304
  Serious: Yes (Other)
  Sender: FDA-Public Use
  Company Number: BR-SHIRE-BR201512986

PATIENT
  Age: 32 Year
  Sex: Male
  Weight: 78 kg

DRUGS (2)
  1. DANAZOL. [Concomitant]
     Active Substance: DANAZOL
     Indication: PRODUCT USED FOR UNKNOWN INDICATION
     Dosage: UNK, UNKNOWN
     Route: 065
  2. FIRAZYR [Suspect]
     Active Substance: ICATIBANT ACETATE
     Indication: HEREDITARY ANGIOEDEMA
     Dosage: 30 MG, AS REQ^D
     Route: 058
     Dates: start: 20150701

REACTIONS (3)
  - Accident at work [Recovered/Resolved]
  - Limb traumatic amputation [Unknown]
  - Disease progression [Unknown]

NARRATIVE: CASE EVENT DATE: 20150703
